FAERS Safety Report 10178568 (Version 1)
Quarter: 2014Q2

REPORT INFORMATION
  Report Type: Spontaneous
  Country: US (occurrence: None)
  Receive Date: 20140516
  Receipt Date: 20140516
  Transmission Date: 20141212
  Serious: No
  Sender: FDA-Public Use
  Company Number: None

PATIENT
  Age: 30 Year
  Sex: Female
  Weight: 54.43 kg

DRUGS (1)
  1. HUMIRA [Suspect]
     Indication: CROHN^S DISEASE
     Dosage: 40MG, INJECTABLE, SUBCUTANEOUS 057, EVERY OTHER WEEK
     Route: 058
     Dates: start: 201311

REACTIONS (2)
  - Headache [None]
  - Migraine [None]
